FAERS Safety Report 9990804 (Version 1)
Quarter: 2014Q1

REPORT INFORMATION
  Report Type: Report from Study
  Country: US (occurrence: US)
  Receive Date: 20140310
  Receipt Date: 20140310
  Transmission Date: 20141002
  Serious: Yes (Hospitalization)
  Sender: FDA-Public Use
  Company Number: US-ABBVIE-13P-163-1134631-00

PATIENT
  Sex: Male
  Weight: 119.86 kg

DRUGS (6)
  1. HUMIRA [Suspect]
     Indication: RHEUMATOID ARTHRITIS
  2. HUMIRA [Suspect]
  3. LISINOPRIL [Concomitant]
     Indication: HYPERTENSION
  4. NORVASC [Concomitant]
     Indication: HYPERTENSION
  5. FOLIC ACID [Concomitant]
     Indication: VITAMIN SUPPLEMENTATION
  6. METHOTREXATE [Concomitant]
     Indication: RHEUMATOID ARTHRITIS

REACTIONS (6)
  - Pulmonary embolism [Recovered/Resolved]
  - Dysuria [Recovered/Resolved]
  - Cystitis [Recovered/Resolved]
  - Prostatomegaly [Unknown]
  - Mobility decreased [Recovered/Resolved]
  - Arthralgia [Not Recovered/Not Resolved]
